FAERS Safety Report 10009792 (Version 1)
Quarter: 2014Q1

REPORT INFORMATION
  Report Type: Spontaneous
  Country: US (occurrence: US)
  Receive Date: 20140312
  Receipt Date: 20140312
  Transmission Date: 20141002
  Serious: No
  Sender: FDA-Public Use
  Company Number: US-INCYTE CORPORATION-2012IN002435

PATIENT
  Sex: Female

DRUGS (2)
  1. JAKAFI [Suspect]
     Indication: MYELOFIBROSIS
     Dosage: 20 MG BID 4 DAYS A WEEK, 20 MG QD 3 DAYS A WEEK
     Route: 048
     Dates: start: 201204
  2. PROZAC [Concomitant]

REACTIONS (2)
  - Neuropathy peripheral [Unknown]
  - Stress fracture [Unknown]
